FAERS Safety Report 7568577-5 (Version None)
Quarter: 2011Q2

REPORT INFORMATION
  Report Type: 
  Country: None (occurrence: None)
  Receive Date: 20110623
  Receipt Date: 20110614
  Transmission Date: 20111010
  Serious: Yes (Other)
  Sender: FDA-Public Use
  Company Number: DK-TEVA-285465ISR

PATIENT
  Age: 64 Year
  Sex: Female

DRUGS (1)
  1. DICLOFENAC SODIUM [Suspect]
     Indication: OSTEOARTHRITIS
     Dosage: 15 MILLIGRAM;

REACTIONS (3)
  - GASTROINTESTINAL DISORDER [None]
  - GASTRIC ULCER [None]
  - GASTRITIS [None]
